FAERS Safety Report 8121103-4 (Version None)
Quarter: 2012Q1

REPORT INFORMATION
  Report Type: 
  Country: None (occurrence: None)
  Receive Date: 20120208
  Receipt Date: 20120202
  Transmission Date: 20120608
  Serious: Yes (Death, Other)
  Sender: FDA-Public Use
  Company Number: AU-BRISTOL-MYERS SQUIBB COMPANY-16248437

PATIENT
  Age: 72 Year
  Sex: Male
  Weight: 77 kg

DRUGS (4)
  1. LITHIUM CARBONATE [Concomitant]
  2. ATORVASTATIN [Concomitant]
  3. PERINDOPRIL [Concomitant]
  4. YERVOY [Suspect]
     Dates: end: 20111024

REACTIONS (7)
  - PNEUMONIA [None]
  - RESPIRATORY FAILURE [None]
  - NAUSEA [None]
  - HYPOPHYSITIS [None]
  - RENAL FAILURE [None]
  - DIABETES INSIPIDUS [None]
  - FATIGUE [None]
